FAERS Safety Report 6929172-1 (Version None)
Quarter: 2010Q3

REPORT INFORMATION
  Report Type: 
  Country: None (occurrence: None)
  Receive Date: 20100813
  Receipt Date: 20100809
  Transmission Date: 20110219
  Serious: Yes (Death, Life-Threatening, Hospitalization, Other)
  Sender: FDA-Public Use
  Company Number: 2010SP043089

PATIENT
  Age: 72 Year
  Sex: Male

DRUGS (16)
  1. TEMOZOLOMIDE [Suspect]
     Indication: GLIOBLASTOMA MULTIFORME
     Dosage: ;PO
     Route: 048
  2. ABT-888 [Suspect]
     Indication: GLIOBLASTOMA MULTIFORME
     Dosage: ;PO
     Route: 048
  3. DEXAMETHASONE [Concomitant]
  4. MULTI-VITAMIN [Concomitant]
  5. ZYFLAMEND [Concomitant]
  6. VACCINIUM MACROCARPON [Concomitant]
  7. ASCORBIC ACID [Concomitant]
  8. COLECALCIFEROL [Concomitant]
  9. COENZYME Q10 [Concomitant]
  10. CHONDROITIN SODIUM SULFATE W/GLUCOSAMINE HCL [Concomitant]
  11. PHYTONADIONE [Concomitant]
  12. ATORVASTATIN [Concomitant]
  13. ATENOLOL [Concomitant]
  14. NIACIN [Concomitant]
  15. CYANOCOBALAMIN [Concomitant]
  16. LEVETIRACETAM [Concomitant]

REACTIONS (6)
  - ASTHENIA [None]
  - DEHYDRATION [None]
  - FATIGUE [None]
  - PULMONARY EMBOLISM [None]
  - SEPTIC SHOCK [None]
  - THROMBOSIS [None]
